FAERS Safety Report 20654597 (Version 1)
Quarter: 2022Q1

REPORT INFORMATION
  Report Type: Report from Study
  Country: US (occurrence: None)
  Receive Date: 20220330
  Receipt Date: 20220330
  Transmission Date: 20220424
  Serious: Yes (Hospitalization)
  Sender: FDA-Public Use
  Company Number: US-Eisai Medical Research-EC-2021-101517

PATIENT
  Age: 65 Year
  Sex: Male
  Weight: 95.6 kg

DRUGS (19)
  1. LENVATINIB [Suspect]
     Active Substance: LENVATINIB
     Indication: Colorectal cancer metastatic
     Route: 048
     Dates: start: 20211007, end: 20211010
  2. PEMBROLIZUMAB [Suspect]
     Active Substance: PEMBROLIZUMAB
     Indication: Colorectal cancer metastatic
     Route: 041
     Dates: start: 20211007, end: 20211007
  3. MOTRIN [Concomitant]
     Active Substance: IBUPROFEN
     Dates: start: 20161214
  4. DECADRON [Concomitant]
     Active Substance: DEXAMETHASONE
     Dates: start: 20190917
  5. XARELTO [Concomitant]
     Active Substance: RIVAROXABAN
     Dates: start: 20210511
  6. ZOFRAN [Concomitant]
     Active Substance: ONDANSETRON HYDROCHLORIDE
     Dates: start: 20210725
  7. PROZAC [Concomitant]
     Active Substance: FLUOXETINE HYDROCHLORIDE
     Dates: start: 20210726
  8. NEURONTIN [Concomitant]
     Active Substance: GABAPENTIN
     Dates: start: 20201228
  9. COZAAR [Concomitant]
     Active Substance: LOSARTAN POTASSIUM
     Dates: start: 20210831
  10. ASPIRIN [Concomitant]
     Active Substance: ASPIRIN
     Dates: start: 20210831
  11. ATIVAN [Concomitant]
     Active Substance: LORAZEPAM
     Dates: start: 20210831
  12. SENNOSIDES [Concomitant]
     Active Substance: SENNOSIDES
     Dates: start: 20210831
  13. LOMOTIL [Concomitant]
     Active Substance: ATROPINE SULFATE\DIPHENOXYLATE HYDROCHLORIDE
     Dates: start: 20210831
  14. TYLENOL [Concomitant]
     Active Substance: ACETAMINOPHEN
     Dates: start: 20210831
  15. HYDROCHLOROTHIAZIDE [Concomitant]
     Active Substance: HYDROCHLOROTHIAZIDE
     Dates: start: 20210831
  16. NORVASC [Concomitant]
     Active Substance: AMLODIPINE BESYLATE
     Dates: start: 20210831
  17. PANTOPRAZOLE SODIUM [Concomitant]
     Active Substance: PANTOPRAZOLE SODIUM
     Dates: start: 20210831
  18. K-DUR [Concomitant]
     Active Substance: POTASSIUM CHLORIDE
     Dates: start: 20210910
  19. K PHOS ORIGINAL [Concomitant]
     Active Substance: POTASSIUM PHOSPHATE, MONOBASIC
     Dates: start: 20211007

REACTIONS (1)
  - Pulmonary embolism [Recovered/Resolved]

NARRATIVE: CASE EVENT DATE: 20211011
